FAERS Safety Report 17772456 (Version 1)
Quarter: 2020Q2

REPORT INFORMATION
  Report Type: Spontaneous
  Country: JP (occurrence: JP)
  Receive Date: 20200512
  Receipt Date: 20200512
  Transmission Date: 20200714
  Serious: Yes (Hospitalization)
  Sender: FDA-Public Use
  Company Number: NVSC2020JP127329

PATIENT
  Age: 38 Year
  Sex: Female

DRUGS (7)
  1. PEGFILGRASTIM [Suspect]
     Active Substance: PEGFILGRASTIM
     Indication: BREAST CANCER STAGE II
     Dosage: UNK, DAY 2
     Route: 065
  2. CYCLOPHOSPHAMIDE. [Suspect]
     Active Substance: CYCLOPHOSPHAMIDE
     Indication: BREAST CANCER STAGE II
     Dosage: 600 MG/M2, CYCLIC DAY 1
     Route: 065
  3. DOCETAXEL. [Suspect]
     Active Substance: DOCETAXEL
     Indication: BREAST CANCER STAGE II
     Dosage: 70 MG/M2, TIW
     Route: 065
  4. DEXAMETASON [Suspect]
     Active Substance: DEXAMETHASONE
     Indication: BREAST CANCER STAGE II
     Dosage: 12 MG, CYCLIC, EVERY 2 WEEKS
     Route: 065
  5. DEXAMETASON [Suspect]
     Active Substance: DEXAMETHASONE
     Dosage: 4 MG ON DAYS 2-4
     Route: 065
  6. ADRIAMYCIN [Suspect]
     Active Substance: DOXORUBICIN HYDROCHLORIDE
     Indication: BREAST CANCER STAGE II
     Dosage: 60 MG/M2, CYCLIC, EVERY 2 WEEKS
     Route: 065
  7. DEXAMETASON [Suspect]
     Active Substance: DEXAMETHASONE
     Dosage: 96 MG
     Route: 065

REACTIONS (4)
  - Dyspnoea [Unknown]
  - Pneumocystis jirovecii pneumonia [Unknown]
  - Pyrexia [Unknown]
  - Product use in unapproved indication [Unknown]
